FAERS Safety Report 15040919 (Version 2)
Quarter: 2018Q2

REPORT INFORMATION
  Report Type: Spontaneous
  Country: US (occurrence: US)
  Receive Date: 20180620
  Receipt Date: 20180628
  Transmission Date: 20180711
  Serious: No
  Sender: FDA-Public Use
  Company Number: US-LUNDBECK-DKLU2050205

PATIENT
  Age: 66 Year
  Sex: Female

DRUGS (3)
  1. NORTHERA [Suspect]
     Active Substance: DROXIDOPA
     Indication: ORTHOSTATIC HYPOTENSION
  2. NORTHERA [Suspect]
     Active Substance: DROXIDOPA
     Indication: DIZZINESS
  3. NORTHERA [Suspect]
     Active Substance: DROXIDOPA
     Indication: AUTONOMIC NEUROPATHY
     Dosage: SCHEDULE D WITH FIXED DOSE OF 100 MG DAILY
     Route: 065
     Dates: start: 20180527

REACTIONS (8)
  - Headache [Unknown]
  - Fatigue [Unknown]
  - Malaise [Unknown]
  - Orthostatic hypotension [Unknown]
  - Dizziness postural [Unknown]
  - Urinary tract infection [Recovering/Resolving]
  - Somnolence [Unknown]
  - Drug dose omission [Unknown]

NARRATIVE: CASE EVENT DATE: 20180603
